FAERS Safety Report 5508316-2 (Version None)
Quarter: 2007Q4

REPORT INFORMATION
  Report Type: 
  Country: None (occurrence: None)
  Receive Date: 20071106
  Receipt Date: 20071012
  Transmission Date: 20080405
  Serious: No
  Sender: FDA-Public Use
  Company Number: US-BOEHRINGER INGELHEIM PHARMACEUTICALS, INC.-2007-BP-22364BP

PATIENT
  Sex: Female

DRUGS (4)
  1. METACAM ORAL SUSPENSION [Suspect]
     Route: 031
     Dates: start: 20070921
  2. PAXIL [Concomitant]
  3. WELLBUTRIN [Concomitant]
  4. VICODIN [Concomitant]

REACTIONS (4)
  - ACCIDENTAL EXPOSURE [None]
  - CONJUNCTIVITIS [None]
  - EYE IRRITATION [None]
  - OCULAR HYPERAEMIA [None]
